FAERS Safety Report 9915783 (Version 1)
Quarter: 2014Q1

REPORT INFORMATION
  Report Type: Spontaneous
  Country: US (occurrence: US)
  Receive Date: 20140221
  Receipt Date: 20140221
  Transmission Date: 20141002
  Serious: No
  Sender: FDA-Public Use
  Company Number: US-009507513-1402USA010259

PATIENT
  Age: 58 Year
  Sex: Female

DRUGS (6)
  1. PEGINTRON [Suspect]
     Indication: HEPATITIS C
     Dosage: REDIPEN, DOSE:0.5CC, ONCE A WEEK
     Route: 048
     Dates: start: 20140205
  2. REBETOL [Suspect]
     Indication: HEPATITIS C
     Dosage: 1400 MG, BID
     Route: 048
     Dates: start: 20140205
  3. SOVALDI [Concomitant]
     Dosage: 400 MG, UNK
  4. LASIX (FUROSEMIDE SODIUM) [Concomitant]
     Dosage: 20 MG, UNK
  5. SYNTHROID [Concomitant]
     Dosage: 0.075 MG, UNK
  6. POTASSIUM (UNSPECIFIED) [Concomitant]
     Dosage: 10 MICROGRAM, UNK

REACTIONS (5)
  - Rash [Unknown]
  - Pruritus [Unknown]
  - Pruritus [Unknown]
  - Fatigue [Unknown]
  - Weight decreased [Unknown]
